FAERS Safety Report 12882836 (Version 2)
Quarter: 2016Q4

REPORT INFORMATION
  Report Type: Spontaneous
  Country: CH (occurrence: FR)
  Receive Date: 20161025
  Receipt Date: 20161101
  Transmission Date: 20170207
  Serious: Yes (Death, Hospitalization)
  Sender: FDA-Public Use
  Company Number: CH-LPDUSPRD-20160928

PATIENT
  Age: 74 Year
  Sex: Female

DRUGS (8)
  1. AMOBARBITAL [Concomitant]
     Active Substance: AMOBARBITAL
     Dosage: UNK
     Route: 048
  2. BISOPROLOL FUMARATE. [Concomitant]
     Active Substance: BISOPROLOL FUMARATE
     Dosage: 2.5 MG
     Route: 048
  3. CORDARONE [Concomitant]
     Active Substance: AMIODARONE HYDROCHLORIDE
     Dosage: 200 MG
     Route: 048
  4. GEMZAR [Concomitant]
     Active Substance: GEMCITABINE HYDROCHLORIDE
     Dosage: CYCLE 4
     Route: 042
  5. PARLODEL [Concomitant]
     Active Substance: BROMOCRIPTINE MESYLATE
     Dosage: 0.5 DOSAGE FORM
     Route: 048
  6. INNOHEP [Concomitant]
     Active Substance: TINZAPARIN SODIUM
     Dosage: 0.4 ML
     Route: 065
     Dates: start: 201607
  7. VENOFER [Suspect]
     Active Substance: IRON SUCROSE
     Dosage: UNK DOSE AND DILUTION
     Route: 042
     Dates: start: 20160804, end: 20160804
  8. LEVOTHYROX [Concomitant]
     Active Substance: LEVOTHYROXINE
     Dosage: 1 DOSAGE FORMS
     Route: 048

REACTIONS (3)
  - Intestinal obstruction [Unknown]
  - Cardiopulmonary failure [Fatal]
  - Tachyarrhythmia [Not Recovered/Not Resolved]

NARRATIVE: CASE EVENT DATE: 201608
